FAERS Safety Report 21810767 (Version 1)
Quarter: 2023Q1

REPORT INFORMATION
  Report Type: Spontaneous
  Country: FR (occurrence: None)
  Receive Date: 20230103
  Receipt Date: 20230103
  Transmission Date: 20230417
  Serious: Yes (Other)
  Sender: FDA-Public Use
  Company Number: 2022A416760

PATIENT
  Age: 83 Year
  Sex: Female
  Weight: 77 kg

DRUGS (1)
  1. XIGDUO XR [Suspect]
     Active Substance: DAPAGLIFLOZIN PROPANEDIOL\METFORMIN HYDROCHLORIDE
     Indication: Diabetes mellitus
     Route: 048
     Dates: start: 202210

REACTIONS (1)
  - Weight decreased [Not Recovered/Not Resolved]

NARRATIVE: CASE EVENT DATE: 20221219
